FAERS Safety Report 7486427-2 (Version None)
Quarter: 2011Q2

REPORT INFORMATION
  Report Type: 
  Country: None (occurrence: None)
  Receive Date: 20110516
  Receipt Date: 20110516
  Transmission Date: 20111010
  Serious: Yes (Life-Threatening, Hospitalization)
  Sender: FDA-Public Use
  Company Number: None

PATIENT
  Age: 63 Year
  Sex: Male
  Weight: 95.2554 kg

DRUGS (4)
  1. PLAVIX [Suspect]
     Indication: CARDIAC DISORDER
     Dosage: 75MG ONE TIME A DAY OTHER
     Dates: start: 20110506
  2. PLAVIX [Suspect]
     Indication: CARDIAC DISORDER
     Dosage: 75MG ONE TIME A DAY OTHER
     Dates: start: 20110509, end: 20110515
  3. ASPIRIN [Concomitant]
  4. PREVACID 05MG [Suspect]
     Indication: COAGULOPATHY
     Dosage: O5MG ONE TWICE A DAY

REACTIONS (1)
  - CHEST PAIN [None]
